FAERS Safety Report 5379541-9 (Version None)
Quarter: 2007Q3

REPORT INFORMATION
  Report Type: 
  Country: None (occurrence: None)
  Receive Date: 20070703
  Receipt Date: 20070621
  Transmission Date: 20080115
  Serious: Yes (Death, Hospitalization)
  Sender: FDA-Public Use
  Company Number: MC200700491

PATIENT
  Age: 67 Year
  Sex: Male

DRUGS (8)
  1. ANGIOMAX [Suspect]
     Indication: PERCUTANEOUS CORONARY INTERVENTION
  2. CLOPIDOGREL [Suspect]
     Dosage: SEE IMAGE
     Route: 048
  3. ASPIRIN [Suspect]
     Dosage: 81 MG, QD
  4. AMLODIPINE [Concomitant]
  5. ATORVASTATIN CALCIUM [Concomitant]
  6. LOSARTAN POTASSIUM [Concomitant]
  7. METOPROLOL TARTRATE [Concomitant]
  8. SPIRONOLACTONE [Concomitant]

REACTIONS (6)
  - ACUTE PULMONARY OEDEMA [None]
  - CORONARY ARTERY STENOSIS [None]
  - DRUG INEFFECTIVE [None]
  - LEFT VENTRICULAR HYPERTROPHY [None]
  - STENT OCCLUSION [None]
  - THROMBOSIS IN DEVICE [None]
